FAERS Safety Report 19921649 (Version 1)
Quarter: 2021Q4

REPORT INFORMATION
  Report Type: Report from Study
  Country: US (occurrence: US)
  Receive Date: 20211006
  Receipt Date: 20211006
  Transmission Date: 20220303
  Serious: Yes (Other)
  Sender: FDA-Public Use
  Company Number: US-AMGEN INC.-USASL2020007028

PATIENT
  Age: 50 Year
  Sex: Female
  Weight: 99.77 kg

DRUGS (27)
  1. AIMOVIG [Suspect]
     Active Substance: ERENUMAB-AOOE
     Indication: Hemiplegic migraine
     Dosage: 70 MILLIGRAM, QMO
     Route: 058
     Dates: start: 20200112, end: 20200112
  2. AMLODIPINE [Concomitant]
     Active Substance: AMLODIPINE BESYLATE
     Indication: Cardiac failure
     Dosage: 5 MILLIGRAM, QD (STARTED 7 YEARS AGO)
     Dates: start: 2013
  3. ISOSORBIDE MONONITRATE [Concomitant]
     Active Substance: ISOSORBIDE MONONITRATE
     Indication: Cardiac failure
     Dosage: 30 MILLIGRAM, QD (STARTED LONGER THAN 7 YEARS)
  4. ISOSORBIDE MONONITRATE [Concomitant]
     Active Substance: ISOSORBIDE MONONITRATE
     Indication: Arteriospasm coronary
  5. CARVEDILOL [Concomitant]
     Active Substance: CARVEDILOL
     Indication: Cardiac failure
     Dosage: 3.125 MILLIGRAM, BID (STARTED 7 YEARS AGO)
     Dates: start: 2013
  6. POTASSIUM [Concomitant]
     Active Substance: POTASSIUM
     Indication: Blood potassium decreased
     Dosage: 10 MILLIGRAM, QD (STARTED 4 YEARS AGO)
     Dates: start: 2016
  7. MIRAPEX [Concomitant]
     Active Substance: PRAMIPEXOLE DIHYDROCHLORIDE
     Indication: Restless legs syndrome
     Dosage: 0.25 MILLIGRAM, TID (STARTED 15 YEARS AGO)
     Dates: start: 2005
  8. CLONAZEPAM [Concomitant]
     Active Substance: CLONAZEPAM
     Indication: Migraine prophylaxis
     Dosage: 0.25 UNKNOWN, TID (THREE TIMES DAY) (STARTED 10 YEARS AGO)
     Dates: start: 2010
  9. TOPIRAMATE [Concomitant]
     Active Substance: TOPIRAMATE
     Indication: Migraine prophylaxis
     Dosage: 400 MILLIGRAM, QD (STARTED 9 YEARS AGO)
     Dates: start: 2011
  10. TRAZODONE [Concomitant]
     Active Substance: TRAZODONE HYDROCHLORIDE
     Indication: Migraine prophylaxis
     Dosage: 150 MILLIGRAM, QD (STARTED 10 YEARS AGO)
     Dates: start: 2005
  11. BANOPHEN DECONGESTANT [Concomitant]
     Dosage: 50 MILLIGRAM
  12. COREG [Concomitant]
     Active Substance: CARVEDILOL
     Dosage: 0.5 MILLIGRAM, BID
  13. VITAMIN D3 [Concomitant]
     Active Substance: CHOLECALCIFEROL
     Dosage: 125 MICROGRAM, QD
     Route: 048
  14. KLONOPIN [Concomitant]
     Active Substance: CLONAZEPAM
     Dosage: 0.25 MILLIGRAM, TID
  15. TYLENOL [Concomitant]
     Active Substance: ACETAMINOPHEN
     Dosage: 650 MILLIGRAM, AS NECESSARY, EVERY 4 HRS
     Route: 048
  16. NORVASC [Concomitant]
     Active Substance: AMLODIPINE BESYLATE
     Dosage: 5 MILLIGRAM, QD
     Route: 048
  17. LEXAPRO [Concomitant]
     Active Substance: ESCITALOPRAM OXALATE
     Dosage: 5 MILLIGRAM, QD
     Route: 048
  18. LASIX [Concomitant]
     Active Substance: FUROSEMIDE
     Dosage: 20 MILLIGRAM, QD
     Route: 048
  19. IMDUR [Concomitant]
     Active Substance: ISOSORBIDE MONONITRATE
     Dosage: 30 MILLIGRAM, QD
  20. MAGNESIUM OXIDE [Concomitant]
     Active Substance: MAGNESIUM OXIDE
     Dosage: 500 MILLIGRAM, QD
     Route: 048
  21. PRILOSEC [Concomitant]
     Active Substance: OMEPRAZOLE MAGNESIUM
     Dosage: 20 MILLIGRAM
  22. ZOFRAN [Concomitant]
     Active Substance: ONDANSETRON HYDROCHLORIDE
     Indication: Nausea
     Dosage: 4 MILLIGRAM, BID
     Route: 060
  23. MICRO K [Concomitant]
     Dosage: 10 MICROEQUIVALENT, QD
     Route: 048
  24. TOPIRAMATE [Concomitant]
     Active Substance: TOPIRAMATE
     Dosage: 200 MILLIGRAM, QD, 2 CAPSULES
     Route: 048
  25. ULTRAM [Concomitant]
     Active Substance: TRAMADOL HYDROCHLORIDE
     Indication: Pain
     Dosage: 50 MILLIGRAM, AS NECESSARY
     Route: 048
  26. DESYREL [Concomitant]
     Active Substance: TRAZODONE HYDROCHLORIDE
     Dosage: 100 MILLIGRAM, QHS
     Route: 048
  27. KENALOG [Concomitant]
     Active Substance: TRIAMCINOLONE ACETONIDE
     Dosage: UNK UNK, BID
     Route: 061

REACTIONS (7)
  - Pruritus [Recovering/Resolving]
  - Throat tightness [Recovering/Resolving]
  - Pharyngeal swelling [Recovering/Resolving]
  - Blood pressure increased [Recovering/Resolving]
  - Hypoaesthesia [Recovering/Resolving]
  - Tachycardia [Recovering/Resolving]
  - Contusion [Recovering/Resolving]

NARRATIVE: CASE EVENT DATE: 20200113
